FAERS Safety Report 17837451 (Version 3)
Quarter: 2020Q4

REPORT INFORMATION
  Report Type: Spontaneous
  Country: AT (occurrence: AT)
  Receive Date: 20200529
  Receipt Date: 20201130
  Transmission Date: 20210113
  Serious: Yes (Other)
  Sender: FDA-Public Use
  Company Number: AT-ALK-ABELLO A/S-2020AA001655

PATIENT

DRUGS (7)
  1. TAE BULK 556 [Suspect]
     Active Substance: BOS TAURUS SKIN
     Indication: PRODUCT USED FOR UNKNOWN INDICATION
     Dosage: 0.5 MILLILITER
     Route: 058
     Dates: start: 201602, end: 202004
  2. SYMBICORT [Concomitant]
     Active Substance: BUDESONIDE\FORMOTEROL FUMARATE DIHYDRATE
     Dosage: UNK
     Route: 055
  3. DESLORATADINE. [Concomitant]
     Active Substance: DESLORATADINE
     Dosage: UNK UNK, PRN
     Route: 048
  4. XOLAIR [Concomitant]
     Active Substance: OMALIZUMAB
     Indication: ASTHMA
     Dosage: UNK
  5. PREDNISOLONE. [Concomitant]
     Active Substance: PREDNISOLONE
     Dosage: 25 MILLIGRAM
     Route: 048
  6. LEVOCETIRIZINE [Concomitant]
     Active Substance: LEVOCETIRIZINE
     Dosage: UNK UNK, PRN
     Route: 048
  7. SINGULAIR [Concomitant]
     Active Substance: MONTELUKAST SODIUM
     Dosage: UNK
     Route: 055

REACTIONS (5)
  - Keratoconus [Unknown]
  - Off label use [Unknown]
  - Corneal degeneration [Unknown]
  - Expired product administered [Unknown]
  - Drug ineffective [Not Recovered/Not Resolved]

NARRATIVE: CASE EVENT DATE: 202004
